FAERS Safety Report 4472525-4 (Version None)
Quarter: 2004Q4

REPORT INFORMATION
  Report Type: 
  Country: None (occurrence: None)
  Receive Date: 20041007
  Receipt Date: 20040930
  Transmission Date: 20050328
  Serious: Yes (Death)
  Sender: FDA-Public Use
  Company Number: SUSI-2004-00626

PATIENT
  Age: 38 Year
  Sex: Female

DRUGS (2)
  1. ADDERALL XR (AMPHETAMINE ASPARTATE, AMPHETAMINE SULFATE, DEXTROAMPHETA [Suspect]
     Dosage: 20 MG, 1X/DAY:QD
  2. DEXDRINE (DEXAMFETAMINE SULFATE) TABLET [Concomitant]

REACTIONS (4)
  - ALCOHOL USE [None]
  - CARDIAC ARREST [None]
  - HEPATOCELLULAR DAMAGE [None]
  - MITRAL VALVE PROLAPSE [None]
